FAERS Safety Report 9102135 (Version 1)
Quarter: 2013Q1

REPORT INFORMATION
  Report Type: Spontaneous
  Country: US (occurrence: US)
  Receive Date: 20130218
  Receipt Date: 20130218
  Transmission Date: 20140127
  Serious: No
  Sender: FDA-Public Use
  Company Number: US-009507513-1302USA003222

PATIENT
  Age: 60 Year
  Sex: Male
  Weight: 72.56 kg

DRUGS (5)
  1. JANUVIA [Suspect]
     Indication: BLOOD GLUCOSE DECREASED
     Dosage: 1 DF, QD
     Route: 048
     Dates: start: 20121201
  2. METFORMIN [Concomitant]
  3. MORPHINE [Concomitant]
  4. CREON (PANCREATIN) [Concomitant]
     Dosage: 24.000 UNITS A DAY
  5. ALDACTONE TABLETS [Concomitant]

REACTIONS (1)
  - Weight decreased [Unknown]
